FAERS Safety Report 8983264 (Version 2)
Quarter: 2013Q1

REPORT INFORMATION
  Report Type: Spontaneous
  Country: DE (occurrence: DE)
  Receive Date: 20121224
  Receipt Date: 20130102
  Transmission Date: 20140127
  Serious: No
  Sender: FDA-Public Use
  Company Number: PHHY2012DE117923

PATIENT
  Age: 2 Year
  Sex: Male

DRUGS (1)
  1. RASILEZ [Suspect]
     Dosage: 3 DF, (150 MG OR 300 MG NOT SPECIFIED)
     Route: 048
     Dates: start: 201209

REACTIONS (3)
  - Accidental exposure to product [Recovered/Resolved]
  - Dizziness [Recovered/Resolved]
  - Overdose [Recovered/Resolved]
